FAERS Safety Report 9817165 (Version 1)
Quarter: 2014Q1

REPORT INFORMATION
  Report Type: Spontaneous
  Country: US (occurrence: US)
  Receive Date: 20140114
  Receipt Date: 20140114
  Transmission Date: 20141002
  Serious: No
  Sender: FDA-Public Use
  Company Number: US-BAUSCH-BL-2013-005704

PATIENT
  Age: 47 Year
  Sex: Female

DRUGS (2)
  1. TOBRAMYCIN OPHTHALMIC SOLUTION USP 0.3% [Suspect]
     Indication: EYE INFECTION
     Dosage: 1 DROP; EVERY 8 HOURS; RIGHT EYE
     Route: 047
     Dates: start: 20131021, end: 20131028
  2. TOBRAMYCIN OPHTHALMIC SOLUTION USP 0.3% [Suspect]
     Dosage: 1 DROP; EVERY 8 HOURS; LEFT EYE
     Route: 047
     Dates: start: 20131021, end: 20131028

REACTIONS (1)
  - Infection [Unknown]
